FAERS Safety Report 6564394-3 (Version None)
Quarter: 2010Q1

REPORT INFORMATION
  Report Type: 
  Country: None (occurrence: None)
  Receive Date: 20100201
  Receipt Date: 20100122
  Transmission Date: 20100710
  Serious: Yes (Other)
  Sender: FDA-Public Use
  Company Number: US-ASTRAZENECA-2010SE03158

PATIENT
  Age: 25 Year
  Sex: Male

DRUGS (2)
  1. QUETIAPINE [Suspect]
     Route: 048
  2. CLOZAPINE [Suspect]
     Dosage: 12.5 MG, 25 MG, 50 MG, 100 MG
     Route: 048

REACTIONS (1)
  - GRANULOCYTOPENIA [None]
